FAERS Safety Report 10244431 (Version 1)
Quarter: 2014Q2

REPORT INFORMATION
  Report Type: Spontaneous
  Country: US (occurrence: US)
  Receive Date: 20140618
  Receipt Date: 20140618
  Transmission Date: 20141212
  Serious: No
  Sender: FDA-Public Use
  Company Number: US-B.I. PHARMACEUTICALS,INC./RIDGEFIELD-2014-BI-26026BP

PATIENT
  Age: 76 Year
  Sex: Female

DRUGS (1)
  1. ATROVENT INHALATION SOLUTION [Suspect]
     Indication: COUGH
     Dosage: 136 MCG
     Route: 055
     Dates: start: 201311

REACTIONS (1)
  - Blood pressure increased [Recovered/Resolved]
